FAERS Safety Report 21746238 (Version 1)
Quarter: 2022Q4

REPORT INFORMATION
  Report Type: Spontaneous
  Country: US (occurrence: None)
  Receive Date: 20221216
  Receipt Date: 20221216
  Transmission Date: 20230113
  Serious: No
  Sender: FDA-Public Use
  Company Number: None

PATIENT
  Sex: Male
  Weight: 74.39 kg

DRUGS (16)
  1. IMATINIB MESYLATE [Suspect]
     Active Substance: IMATINIB MESYLATE
     Indication: Chronic myeloid leukaemia
     Dosage: FREQUENCY : DAILY;?
     Route: 048
     Dates: start: 202106
  2. ACETAMINOPHEN [Concomitant]
  3. AMOXICILLIN [Concomitant]
     Active Substance: AMOXICILLIN
  4. ATORVASTATIN [Concomitant]
  5. GLUCAGON [Concomitant]
  6. HUMULIN 70/30 KWIKPEN [Concomitant]
  7. HYDROCODONE AND ACETAMINOPHEN [Concomitant]
  8. INSULIN GLARGINE [Concomitant]
  9. LANTUS [Concomitant]
  10. LISINOPRIL [Concomitant]
  11. MELATONIN [Concomitant]
  12. MULTIVITAMIN [Concomitant]
  13. OMEGA-3 FATTY ACIDS [Concomitant]
  14. ONDANSETRON [Concomitant]
  15. PROCHLORPERAZINE [Concomitant]
  16. SENNO [Concomitant]

REACTIONS (1)
  - Pleural effusion [None]
